FAERS Safety Report 16556296 (Version 3)
Quarter: 2019Q4

REPORT INFORMATION
  Report Type: Spontaneous
  Country: US (occurrence: US)
  Receive Date: 20190710
  Receipt Date: 20191230
  Transmission Date: 20200122
  Serious: Yes (Hospitalization, Other)
  Sender: FDA-Public Use
  Company Number: US-NOVOPROD-671490

PATIENT
  Age: 52 Year
  Sex: Male

DRUGS (1)
  1. LEVEMIR [Suspect]
     Active Substance: INSULIN DETEMIR
     Indication: TYPE 1 DIABETES MELLITUS
     Dosage: UNK
     Route: 058
     Dates: start: 2011

REACTIONS (15)
  - Gastrointestinal haemorrhage [Recovered/Resolved]
  - Diabetic ketoacidosis [Not Recovered/Not Resolved]
  - Weight abnormal [Unknown]
  - Breast abscess [Recovering/Resolving]
  - Haemorrhage [Unknown]
  - Anaemia [Not Recovered/Not Resolved]
  - Nausea [Unknown]
  - Breast injury [Recovering/Resolving]
  - Acute kidney injury [Not Recovered/Not Resolved]
  - Vomiting [Unknown]
  - Hypoglycaemic unconsciousness [Recovered/Resolved]
  - Hypertensive urgency [Not Recovered/Not Resolved]
  - Drug ineffective [Unknown]
  - Hypokalaemia [Not Recovered/Not Resolved]
  - Hypoglycaemic unconsciousness [Recovered/Resolved]

NARRATIVE: CASE EVENT DATE: 2017
